FAERS Safety Report 21956602 (Version 1)
Quarter: 2023Q1

REPORT INFORMATION
  Report Type: Spontaneous
  Country: US (occurrence: US)
  Receive Date: 20230206
  Receipt Date: 20230206
  Transmission Date: 20230417
  Serious: No
  Sender: FDA-Public Use
  Company Number: US-PERRIGO-22US007521

PATIENT
  Age: 69 Year
  Sex: Female
  Weight: 99.773 kg

DRUGS (6)
  1. CETIRIZINE HYDROCHLORIDE [Suspect]
     Active Substance: CETIRIZINE HYDROCHLORIDE
     Indication: Hypersensitivity
     Dosage: 10 MG, EVERY MORNING
     Route: 048
     Dates: start: 20220517
  2. TEGRETOL [Suspect]
     Active Substance: CARBAMAZEPINE
     Indication: Epilepsy
     Dosage: ONE AND A HALF TABLETS, BID
     Route: 048
     Dates: start: 1964
  3. LISINOPRIL [Suspect]
     Active Substance: LISINOPRIL
     Indication: Hypertension
     Dosage: ONE TABLET, AT BEDTIME
     Route: 048
     Dates: start: 1994
  4. ATORVASTATIN [Suspect]
     Active Substance: ATORVASTATIN
     Indication: Blood cholesterol increased
     Dosage: 40 MG, QD
     Route: 048
     Dates: start: 2019
  5. ATORVASTATIN [Suspect]
     Active Substance: ATORVASTATIN
     Dosage: 30 MG, QD
     Route: 048
     Dates: start: 2019, end: 2019
  6. SINGULAIR [Concomitant]
     Active Substance: MONTELUKAST SODIUM
     Indication: Hypersensitivity
     Dosage: UNK
     Route: 065
     Dates: start: 20220517

REACTIONS (2)
  - Somnolence [Recovered/Resolved]
  - Product administered to patient of inappropriate age [Not Recovered/Not Resolved]

NARRATIVE: CASE EVENT DATE: 20220517
